FAERS Safety Report 15531903 (Version 4)
Quarter: 2019Q1

REPORT INFORMATION
  Report Type: Spontaneous
  Country: US (occurrence: US)
  Receive Date: 20181019
  Receipt Date: 20190114
  Transmission Date: 20190417
  Serious: No
  Sender: FDA-Public Use
  Company Number: US-TAKEDA-2018MPI013063

PATIENT
  Age: 79 Year
  Sex: Male
  Weight: 63.04 kg

DRUGS (3)
  1. NINLARO [Suspect]
     Active Substance: IXAZOMIB CITRATE
     Indication: PLASMA CELL MYELOMA
     Dosage: 4 MG, UNK
     Route: 048
     Dates: start: 20180723, end: 20181228
  2. POMALYST [Suspect]
     Active Substance: POMALIDOMIDE
     Route: 065
  3. REVLIMID [Suspect]
     Active Substance: LENALIDOMIDE
     Indication: PLASMA CELL MYELOMA
     Dosage: 5 MG, UNK
     Route: 065
     Dates: end: 20181101

REACTIONS (8)
  - Neuropathy peripheral [Unknown]
  - Diarrhoea [Unknown]
  - Off label use [Unknown]
  - Hernia [Unknown]
  - Fatigue [Unknown]
  - Malaise [Unknown]
  - Blood calcium decreased [Unknown]
  - Platelet disorder [Unknown]

NARRATIVE: CASE EVENT DATE: 20181101
